FAERS Safety Report 8374989-2 (Version None)
Quarter: 2012Q2

REPORT INFORMATION
  Report Type: 
  Country: None (occurrence: None)
  Receive Date: 20120521
  Receipt Date: 20120511
  Transmission Date: 20120825
  Serious: Yes (Other)
  Sender: FDA-Public Use
  Company Number: US-ROCHE-1063098

PATIENT
  Sex: Female
  Weight: 65.83 kg

DRUGS (7)
  1. XELODA [Suspect]
     Indication: BREAST CANCER METASTATIC
     Dosage: DOSE: 500 MG IN MORNING AND 1000 MG IN EVENING
     Route: 048
     Dates: start: 20120110, end: 20120410
  2. XELODA [Suspect]
     Dosage: DOSE: 500 MG IN MORNING AND 1000 MG IN EVENING
     Route: 048
     Dates: start: 20120424
  3. XELODA [Suspect]
     Dosage: 500 MG AM AND 1000MG PM
     Route: 048
     Dates: start: 20120201
  4. FOSAMAX [Concomitant]
     Indication: OSTEOPOROSIS
     Route: 048
  5. ZOMETA [Concomitant]
     Indication: OSTEOPOROSIS
     Route: 042
  6. XELODA [Suspect]
     Dosage: DOSE: 1000 MG IN MORNING AND 1500 MG IN EVENING.
     Route: 048
     Dates: start: 20120410, end: 20120424
  7. AROMASIN [Concomitant]
     Indication: BREAST CANCER
     Route: 048
     Dates: start: 20110201

REACTIONS (7)
  - VISION BLURRED [None]
  - DYSGEUSIA [None]
  - ALOPECIA [None]
  - DECREASED APPETITE [None]
  - ANXIETY [None]
  - BURNING SENSATION [None]
  - NERVOUSNESS [None]
